FAERS Safety Report 13046698 (Version 1)
Quarter: 2016Q4

REPORT INFORMATION
  Report Type: Spontaneous
  Country: CN (occurrence: CN)
  Receive Date: 20161220
  Receipt Date: 20161220
  Transmission Date: 20170207
  Serious: Yes (Life-Threatening)
  Sender: FDA-Public Use
  Company Number: CN-BAYER-2016-236261

PATIENT
  Age: 87 Year
  Sex: Female
  Weight: 48 kg

DRUGS (2)
  1. CEFOPERAZONE [Concomitant]
     Active Substance: CEFOPERAZONE
     Dosage: UNK
  2. AVELOX [Suspect]
     Active Substance: MOXIFLOXACIN HYDROCHLORIDE
     Indication: LUNG INFECTION
     Dosage: .4 G, QD
     Route: 041
     Dates: start: 20160923, end: 20161001

REACTIONS (2)
  - Depressed level of consciousness [Recovering/Resolving]
  - Dysphoria [Recovering/Resolving]

NARRATIVE: CASE EVENT DATE: 20160930
